FAERS Safety Report 9758949 (Version 1)
Quarter: 2013Q4

REPORT INFORMATION
  Report Type: Spontaneous
  Country: DE (occurrence: None)
  Receive Date: 20131216
  Receipt Date: 20131216
  Transmission Date: 20140711
  Serious: Yes (Congenital Anomaly)
  Sender: FDA-Public Use
  Company Number: E2B_00000621(0)

PATIENT
  Sex: Female
  Weight: 2 kg

DRUGS (3)
  1. METFORMIN (UNKNOWN) [Suspect]
     Indication: POLYCYSTIC OVARIES
     Dosage: 1700 [MG/D (2 X 850 MQ/D) 1700 [MG/D (2 X 850 MG/D) T RAN S PLACENT A 1
  2. VENLAFAXINE [Suspect]
     Indication: DEPRESSION
     Dosage: 300 [MG/D ]/ TILL WEEK 5: 300 MG/D;? ? ? ? ? ? ? ?
  3. MELPERONE [Suspect]
     Indication: DEPRESSION
     Dosage: 200 [MG /D ] / TILL WEEK 5: 200MG/D;

REACTIONS (9)
  - Congenital uterine anomaly [None]
  - Anal atresia [None]
  - Congenital absence of bile ducts [None]
  - Persistent cloaca [None]
  - Spine malformation [None]
  - Atrial septal defect [None]
  - Right aortic arch [None]
  - Persistent left superior vena cava [None]
  - Fallot^s tetralogy [None]
